FAERS Safety Report 18783126 (Version 4)
Quarter: 2021Q1

REPORT INFORMATION
  Report Type: Spontaneous
  Country: US (occurrence: US)
  Receive Date: 20210125
  Receipt Date: 20210315
  Transmission Date: 20210419
  Serious: Yes (Hospitalization, Other)
  Sender: FDA-Public Use
  Company Number: US-JNJFOC-20210129121

PATIENT
  Age: 62 Year
  Sex: Male
  Weight: 99.77 kg

DRUGS (4)
  1. ELIQUIS [Concomitant]
     Active Substance: APIXABAN
  2. ADEMPAS [Suspect]
     Active Substance: RIOCIGUAT
     Indication: PULMONARY ARTERIAL HYPERTENSION
     Dosage: UNK
     Route: 048
     Dates: start: 20200227
  3. RIVAROXABAN [Suspect]
     Active Substance: RIVAROXABAN
     Indication: PRODUCT USED FOR UNKNOWN INDICATION
     Dosage: UNK
     Route: 048
  4. ADEMPAS [Suspect]
     Active Substance: RIOCIGUAT
     Indication: PULMONARY ARTERIAL HYPERTENSION
     Dosage: 2.5 MG, TID
     Route: 048
     Dates: end: 20210304

REACTIONS (9)
  - Haemorrhoid operation [Unknown]
  - Graft complication [Unknown]
  - Cardiac disorder [Unknown]
  - Peripheral swelling [Unknown]
  - Haemorrhoidal haemorrhage [Unknown]
  - Pulmonary thrombosis [Recovered/Resolved]
  - Lung disorder [Unknown]
  - Dialysis [Unknown]
  - Dehydration [Unknown]

NARRATIVE: CASE EVENT DATE: 20201225
